FAERS Safety Report 5013659-5 (Version None)
Quarter: 2006Q2

REPORT INFORMATION
  Report Type: 
  Country: None (occurrence: None)
  Receive Date: 20060530
  Receipt Date: 20060519
  Transmission Date: 20061013
  Serious: Yes (Disabling)
  Sender: FDA-Public Use
  Company Number: SY-GLAXOSMITHKLINE-B0425249A

PATIENT
  Age: 13 Year
  Sex: Male

DRUGS (4)
  1. LAMICTAL [Suspect]
     Dosage: 200MG PER DAY
     Route: 048
     Dates: start: 20000101
  2. DEPAKENE [Suspect]
     Dosage: 1500MG PER DAY
     Route: 048
     Dates: start: 20000101
  3. PHENYTOIN [Suspect]
     Route: 048
     Dates: start: 20000101
  4. RIVOTRIL [Suspect]
     Dosage: 1MG PER DAY
     Route: 048
     Dates: start: 20000101

REACTIONS (3)
  - COGNITIVE DETERIORATION [None]
  - DEPRESSED LEVEL OF CONSCIOUSNESS [None]
  - DYSKINESIA [None]
